FAERS Safety Report 9946410 (Version 1)
Quarter: 2014Q1

REPORT INFORMATION
  Report Type: Report from Study
  Country: US (occurrence: US)
  Receive Date: 20140303
  Receipt Date: 20140303
  Transmission Date: 20141002
  Serious: No
  Sender: FDA-Public Use
  Company Number: US-ABBVIE-13P-163-1062929-00

PATIENT
  Age: 72 Year
  Sex: Male

DRUGS (8)
  1. HUMIRA [Suspect]
     Indication: RHEUMATOID ARTHRITIS
  2. LORATIDINE [Concomitant]
     Indication: PRURITUS
     Dosage: 10 MG DAILY
  3. N-ACETLYCYSTINE [Concomitant]
     Indication: PULMONARY FIBROSIS
  4. VITAMINS [Concomitant]
     Indication: PRODUCT USED FOR UNKNOWN INDICATION
     Dosage: DAILY
  5. AZATHIOPRINE [Concomitant]
  6. AZATHIOPRINE [Concomitant]
     Dosage: DECREASED DOSAGE
  7. AZATHIOPRINE [Concomitant]
  8. AZATHIOPRINE [Concomitant]

REACTIONS (3)
  - Joint swelling [Recovering/Resolving]
  - Injection site pain [Recovering/Resolving]
  - Arthralgia [Recovering/Resolving]
